FAERS Safety Report 4980039-8 (Version None)
Quarter: 2006Q2

REPORT INFORMATION
  Report Type: 
  Country: None (occurrence: None)
  Receive Date: 20060421
  Receipt Date: 20050414
  Transmission Date: 20061013
  Serious: Yes (Hospitalization, Disabling)
  Sender: FDA-Public Use
  Company Number: US-MERCK-0504USA03850

PATIENT
  Age: 45 Year
  Sex: Female
  Weight: 71 kg

DRUGS (3)
  1. VIOXX [Suspect]
     Indication: PAIN
     Route: 048
     Dates: start: 20020401, end: 20040901
  2. DITROPAN [Concomitant]
     Route: 065
  3. CELEBREX [Concomitant]
     Route: 065

REACTIONS (6)
  - BACK DISORDER [None]
  - BLADDER DISORDER [None]
  - HYPERTENSION [None]
  - HYSTERECTOMY [None]
  - SURGERY [None]
  - UTERINE HAEMORRHAGE [None]
